FAERS Safety Report 20893111 (Version 1)
Quarter: 2022Q2

REPORT INFORMATION
  Report Type: Spontaneous
  Country: FR (occurrence: FR)
  Receive Date: 20220531
  Receipt Date: 20220531
  Transmission Date: 20220721
  Serious: Yes (Other)
  Sender: FDA-Public Use
  Company Number: FR-ORGANON-O2107FRA001353

PATIENT
  Age: 53 Year
  Sex: Female

DRUGS (4)
  1. BETAMETHASONE [Suspect]
     Active Substance: BETAMETHASONE
     Indication: Asthma
     Dosage: DIRECTLY IN THE MOUTH (15-20 DROPS/DAYS) AND ON AN EMPTY STOMACH IN THE MORNING
     Route: 048
  2. BETAMETHASONE [Suspect]
     Active Substance: BETAMETHASONE
     Indication: Dermatitis atopic
     Dosage: UNK
     Route: 048
     Dates: start: 20220418
  3. PFIZER-BIONTECH COVID-19 VACCINE [Suspect]
     Active Substance: TOZINAMERAN
     Indication: COVID-19 immunisation
     Dosage: UNK
     Dates: start: 20210622
  4. PFIZER-BIONTECH COVID-19 VACCINE [Suspect]
     Active Substance: TOZINAMERAN
     Dosage: HALF DOSE OF PFIZER VACCINATION
     Dates: start: 202205

REACTIONS (18)
  - Root canal infection [Unknown]
  - Dizziness [Unknown]
  - Migraine [Unknown]
  - Eye pain [Unknown]
  - Abdominal pain upper [Unknown]
  - Diarrhoea [Unknown]
  - Vomiting [Recovered/Resolved]
  - Skin disorder [Unknown]
  - Eczema [Not Recovered/Not Resolved]
  - Diarrhoea [Unknown]
  - Fatigue [Unknown]
  - Speech disorder [Unknown]
  - Hypersensitivity [Unknown]
  - Headache [Unknown]
  - Erythema [Unknown]
  - Product use issue [Unknown]
  - Product use issue [Unknown]
  - Suspected product quality issue [Unknown]

NARRATIVE: CASE EVENT DATE: 20210622
